FAERS Safety Report 23031725 (Version 2)
Quarter: 2023Q4

REPORT INFORMATION
  Report Type: Spontaneous
  Country: FR (occurrence: FR)
  Receive Date: 20231005
  Receipt Date: 20231019
  Transmission Date: 20240109
  Serious: Yes (Death)
  Sender: FDA-Public Use
  Company Number: FR-AFSSAPS-AVCN2023000512

PATIENT
  Age: 27 Year
  Sex: Male

DRUGS (7)
  1. MIRTAZAPINE [Suspect]
     Active Substance: MIRTAZAPINE
     Dosage: UNK
     Dates: end: 20221008
  2. MORPHINE [Suspect]
     Active Substance: MORPHINE
     Dosage: UNK
     Dates: end: 20221008
  3. DELTA(9)-TETRAHYDROCANNABINOLIC ACID [Suspect]
     Active Substance: DELTA(9)-TETRAHYDROCANNABINOLIC ACID
     Dosage: UNK
     Dates: end: 20221008
  4. NORDAZEPAM [Suspect]
     Active Substance: NORDAZEPAM
     Dosage: UNK
     Dates: end: 20221008
  5. ALCOHOL [Suspect]
     Active Substance: ALCOHOL
     Dosage: UNK
     Dates: end: 20221008
  6. CYAMEMAZINE [Suspect]
     Active Substance: CYAMEMAZINE
     Dosage: UNK
     Dates: end: 20221008
  7. DIAZEPAM [Suspect]
     Active Substance: DIAZEPAM
     Dosage: UNK
     Dates: end: 20221008

REACTIONS (3)
  - Drug abuse [Fatal]
  - Poisoning [Fatal]
  - Asphyxia [Fatal]
